FAERS Safety Report 7413848-6 (Version None)
Quarter: 2011Q2

REPORT INFORMATION
  Report Type: 
  Country: None (occurrence: None)
  Receive Date: 20110413
  Receipt Date: 20100818
  Transmission Date: 20111010
  Serious: Yes (Other)
  Sender: FDA-Public Use
  Company Number: US-BRISTOL-MYERS SQUIBB COMPANY-15244767

PATIENT
  Age: 6 Decade
  Sex: Male

DRUGS (2)
  1. ONGLYZA [Suspect]
     Dosage: THERAPY:3TO6 WEEKS
  2. METFORMIN HCL [Suspect]

REACTIONS (1)
  - PANCREATITIS [None]
